FAERS Safety Report 11450254 (Version 1)
Quarter: 2015Q3

REPORT INFORMATION
  Report Type: Spontaneous
  Country: US (occurrence: US)
  Receive Date: 20150903
  Receipt Date: 20150903
  Transmission Date: 20151125
  Serious: No
  Sender: FDA-Public Use
  Company Number: US-ROCHE-1053232

PATIENT
  Sex: Female

DRUGS (3)
  1. PEGASYS [Suspect]
     Active Substance: PEGINTERFERON ALFA-2A
     Indication: CHRONIC HEPATITIS C
     Route: 065
     Dates: start: 20120203
  2. RIBASPHERE [Suspect]
     Active Substance: RIBAVIRIN
     Indication: CHRONIC HEPATITIS C
     Route: 048
     Dates: start: 20120203
  3. TELAPREVIR [Suspect]
     Active Substance: TELAPREVIR
     Indication: CHRONIC HEPATITIS C
     Route: 065
     Dates: start: 20120203

REACTIONS (9)
  - Wrong technique in product usage process [Unknown]
  - Anxiety [Unknown]
  - Throat irritation [Unknown]
  - Nervousness [Unknown]
  - Tremor [Unknown]
  - Middle ear effusion [Unknown]
  - Epistaxis [Unknown]
  - White blood cell count decreased [Unknown]
  - Insomnia [Unknown]
